FAERS Safety Report 24559123 (Version 1)
Quarter: 2024Q4

REPORT INFORMATION
  Report Type: Spontaneous
  Country: JP (occurrence: JP)
  Receive Date: 20241029
  Receipt Date: 20241029
  Transmission Date: 20250114
  Serious: Yes (Hospitalization, Other)
  Sender: USPHARMA
  Company Number: JP-USP-004908

PATIENT
  Age: 47 Year
  Sex: Female

DRUGS (1)
  1. DEXTROAMPHETAMINE [Suspect]
     Active Substance: DEXTROAMPHETAMINE
     Indication: Drug dependence
     Route: 065

REACTIONS (6)
  - Encephalopathy [Recovered/Resolved]
  - Encephalitis [Recovered/Resolved]
  - Overdose [Unknown]
  - Renal failure [Unknown]
  - Cytotoxic lesions of corpus callosum [Recovered/Resolved]
  - Hypotension [Unknown]
